FAERS Safety Report 4750746-0 (Version None)
Quarter: 2005Q3

REPORT INFORMATION
  Report Type: 
  Country: None (occurrence: None)
  Receive Date: 20050823
  Receipt Date: 20050223
  Transmission Date: 20060218
  Serious: Yes (Hospitalization)
  Sender: FDA-Public Use
  Company Number: US-MERCK-0502USA03216

PATIENT
  Age: 69 Year
  Sex: Female

DRUGS (5)
  1. VIOXX [Suspect]
     Indication: OSTEOARTHRITIS
     Route: 048
     Dates: start: 20030510
  2. VICODIN [Suspect]
     Route: 065
  3. ECOTRIN [Concomitant]
     Route: 065
  4. ATACAND [Concomitant]
     Indication: HYPERTENSION
     Route: 065
  5. PREMARIN [Concomitant]
     Route: 065

REACTIONS (10)
  - ADVERSE DRUG REACTION [None]
  - ANAEMIA POSTOPERATIVE [None]
  - CEREBRAL ATROPHY [None]
  - CEREBRAL INFARCTION [None]
  - HALLUCINATION, VISUAL [None]
  - HYPERTENSION [None]
  - ISCHAEMIC CEREBRAL INFARCTION [None]
  - LACUNAR INFARCTION [None]
  - OSTEOARTHRITIS [None]
  - SYNCOPE [None]
